FAERS Safety Report 7189305-1 (Version None)
Quarter: 2010Q4

REPORT INFORMATION
  Report Type: 
  Country: None (occurrence: None)
  Receive Date: 20101222
  Receipt Date: 20100811
  Transmission Date: 20110411
  Serious: Yes (Hospitalization)
  Sender: FDA-Public Use
  Company Number: US-AMGEN-QUU423439

PATIENT

DRUGS (13)
  1. ENBREL [Suspect]
     Indication: PSORIATIC ARTHROPATHY
     Dosage: 50 MG, QWK
     Route: 058
     Dates: start: 20041104, end: 20100428
  2. GABAPENTIN [Concomitant]
  3. HYDROCHLOROTHIAZIDE [Concomitant]
  4. ZOLPIDEM TARTRATE [Concomitant]
  5. ALPRAZOLAM [Concomitant]
  6. DICLOFENAC SODIUM [Concomitant]
  7. CLONIDINE [Concomitant]
  8. URSODIOL [Concomitant]
  9. CARVEDILOL [Concomitant]
  10. ERGOCALCIFEROL [Concomitant]
  11. IMATINIB MESYLATE [Concomitant]
  12. FLUOXETINE HYDROCHLORIDE [Concomitant]
  13. GLIBENCLAMIDE [Concomitant]

REACTIONS (2)
  - CHROMOSOME ANALYSIS ABNORMAL [None]
  - CHRONIC MYELOID LEUKAEMIA [None]
